FAERS Safety Report 14352707 (Version 1)
Quarter: 2018Q1

REPORT INFORMATION
  Report Type: Spontaneous
  Country: US (occurrence: US)
  Receive Date: 20180104
  Receipt Date: 20180104
  Transmission Date: 20180509
  Serious: No
  Sender: FDA-Public Use
  Company Number: US-PFIZER INC-2017548759

PATIENT
  Age: 57 Year
  Sex: Female

DRUGS (1)
  1. NEURONTIN [Suspect]
     Active Substance: GABAPENTIN
     Dosage: 1 DF, UNK

REACTIONS (5)
  - Coordination abnormal [Unknown]
  - Swollen tongue [Unknown]
  - Drug hypersensitivity [Unknown]
  - Hypoaesthesia oral [Unknown]
  - Vision blurred [Unknown]

NARRATIVE: CASE EVENT DATE: 200910
